FAERS Safety Report 20249162 (Version 1)
Quarter: 2021Q4

REPORT INFORMATION
  Report Type: Spontaneous
  Country: US (occurrence: None)
  Receive Date: 20211228
  Receipt Date: 20211228
  Transmission Date: 20220303
  Serious: No
  Sender: FDA-Public Use
  Company Number: None

PATIENT
  Age: 51 Year
  Sex: Female

DRUGS (4)
  1. COSENTYX [Suspect]
     Active Substance: SECUKINUMAB
     Indication: Psoriasis
     Dosage: FREQUENCY : MONTHLY;?INJECT 2 PENS SQ O4QKS
     Route: 058
     Dates: start: 20190410
  2. ATIVAN TAB 2MG [Concomitant]
  3. COSENTYX [Concomitant]
     Active Substance: SECUKINUMAB
  4. ZOLOFT TAB 100MG [Concomitant]

REACTIONS (1)
  - Rash [None]

NARRATIVE: CASE EVENT DATE: 20211228
